FAERS Safety Report 6344333-0 (Version None)
Quarter: 2009Q3

REPORT INFORMATION
  Report Type: 
  Country: None (occurrence: None)
  Receive Date: 20090908
  Receipt Date: 20090828
  Transmission Date: 20100115
  Serious: Yes (Other)
  Sender: FDA-Public Use
  Company Number: BR-JNJFOC-20090900337

PATIENT
  Sex: Female

DRUGS (2)
  1. INVEGA [Suspect]
     Indication: SCHIZOPHRENIA
     Route: 048
  2. VENLAFAXINE HYDROCHLORIDE [Suspect]
     Indication: ANTIDEPRESSANT THERAPY

REACTIONS (2)
  - BLOOD PRESSURE INCREASED [None]
  - FACIAL SPASM [None]
